FAERS Safety Report 6829702-4 (Version None)
Quarter: 2010Q3

REPORT INFORMATION
  Report Type: 
  Country: None (occurrence: None)
  Receive Date: 20100709
  Receipt Date: 20070719
  Transmission Date: 20110219
  Serious: No
  Sender: FDA-Public Use
  Company Number: US-PFIZER INC-2007009241

PATIENT
  Sex: Female
  Weight: 76.2 kg

DRUGS (15)
  1. CHANTIX [Suspect]
     Indication: SMOKING CESSATION THERAPY
     Route: 048
     Dates: start: 20070118, end: 20070101
  2. CHLOROPHYLL [Concomitant]
  3. VITAMIN D [Concomitant]
  4. VITAMIN B COMPLEX CAP [Concomitant]
  5. VITAMIN C [Concomitant]
  6. VITAMIN E [Concomitant]
  7. DITROPAN XL [Concomitant]
  8. MULTIVITAMINS AND IRON [Concomitant]
  9. OXYGEN [Concomitant]
  10. ADVAIR DISKUS 100/50 [Concomitant]
  11. ALBUTEROL [Concomitant]
     Route: 055
  12. TIOTROPIUM BROMIDE [Concomitant]
  13. ACETYLSALICYLIC ACID [Concomitant]
  14. CLONAZEPAM [Concomitant]
  15. VERAPAMIL [Concomitant]

REACTIONS (2)
  - FLATULENCE [None]
  - NAUSEA [None]
